FAERS Safety Report 8268279-6 (Version None)
Quarter: 2012Q2

REPORT INFORMATION
  Report Type: 
  Country: None (occurrence: None)
  Receive Date: 20120409
  Receipt Date: 20120330
  Transmission Date: 20120825
  Serious: Yes (Hospitalization)
  Sender: FDA-Public Use
  Company Number: PHHO2012SK004052

PATIENT
  Sex: Female
  Weight: 63 kg

DRUGS (12)
  1. BLINDED NO TREATMENT RECEIVED [Suspect]
     Indication: CARDIAC FAILURE
     Dosage: CODE NOT BROKEN
     Route: 048
     Dates: start: 20111219
  2. URAPIDIL [Concomitant]
     Indication: HYPERTENSION
     Dosage: 60 MG, QD
     Dates: start: 20090129, end: 20120305
  3. URAPIDIL [Concomitant]
     Dosage: UNK
     Dates: start: 20120306
  4. FRAXIPARINE [Concomitant]
     Dosage: UNK
  5. WARFARIN SODIUM [Suspect]
     Indication: ATRIAL FIBRILLATION
     Dosage: 5 MG, QD
     Dates: start: 20000405, end: 20120305
  6. ENALAPRIL MALEATE [Suspect]
     Indication: CARDIAC FAILURE
     Dosage: CODE NOT BROKEN
     Route: 048
     Dates: start: 20111219
  7. MONOSAN [Concomitant]
     Indication: MYOCARDIAL ISCHAEMIA
     Dosage: 40 MG, BID
     Route: 048
     Dates: start: 20060217
  8. WARFARIN SODIUM [Suspect]
     Dosage: 5 MG, QD
  9. AMLODIPINE [Concomitant]
     Indication: HYPERTENSION
     Dosage: 5 MG, QD
     Dates: start: 20061215
  10. CARVEDILOL [Concomitant]
     Indication: CARDIAC FAILURE
     Dosage: 12.5 MG, BID
     Route: 048
     Dates: start: 20091023
  11. BLINDED ALISKIREN [Suspect]
     Indication: CARDIAC FAILURE
     Dosage: CODE NOT BROKEN
     Route: 048
     Dates: start: 20111219
  12. INDAPAMIDE [Concomitant]
     Indication: HYPERTENSION
     Dosage: 1.25 MG, QD
     Dates: start: 20021118

REACTIONS (4)
  - HAEMOPTYSIS [None]
  - DISEASE PROGRESSION [None]
  - CARDIAC FAILURE [None]
  - HYPERCOAGULATION [None]
